FAERS Safety Report 5477056-0 (Version None)
Quarter: 2007Q4

REPORT INFORMATION
  Report Type: 
  Country: None (occurrence: None)
  Receive Date: 20071004
  Receipt Date: 20070924
  Transmission Date: 20080405
  Serious: Yes (Hospitalization, Other)
  Sender: FDA-Public Use
  Company Number: US-AMGEN-KDL225614

PATIENT
  Sex: Female

DRUGS (2)
  1. ENBREL [Suspect]
     Indication: RHEUMATOID ARTHRITIS
     Route: 058
     Dates: start: 20000927
  2. IBUPROFEN [Concomitant]
     Dates: start: 20060809

REACTIONS (6)
  - ARTHRALGIA [None]
  - BODY TEMPERATURE DECREASED [None]
  - JOINT STIFFNESS [None]
  - KNEE ARTHROPLASTY [None]
  - PLATELET COUNT DECREASED [None]
  - UPPER RESPIRATORY TRACT INFECTION [None]
